FAERS Safety Report 11548984 (Version 1)
Quarter: 2015Q3

REPORT INFORMATION
  Report Type: Spontaneous
  Country: US (occurrence: US)
  Receive Date: 20150924
  Receipt Date: 20150924
  Transmission Date: 20151125
  Serious: No
  Sender: FDA-Public Use
  Company Number: US-INCYTE CORPORATION-2015IN001555

PATIENT
  Age: 62 Year
  Sex: Male
  Weight: 86 kg

DRUGS (9)
  1. GLUCAGON. [Concomitant]
     Active Substance: GLUCAGON
     Dosage: USE AS DIRECTED FOR EXTREME LOW BLOOD SUGER REACTION
  2. ASPIRIN. [Concomitant]
     Active Substance: ASPIRIN
     Dosage: 81 MG, QD
     Route: 048
  3. LANTUS [Concomitant]
     Active Substance: INSULIN GLARGINE
     Dosage: INJECT 18 UNITS UNDER THE SKIN NIGHTLY
     Route: 058
  4. OMEPRAZOLE. [Concomitant]
     Active Substance: OMEPRAZOLE
     Dosage: 20 MG, NIGHTLY
     Route: 048
  5. SIMVASTATIN. [Concomitant]
     Active Substance: SIMVASTATIN
     Dosage: 40 MG, NIGHTLY
     Route: 048
  6. APIDRA [Concomitant]
     Active Substance: INSULIN GLULISINE
     Dosage: 100 IU/ML INJECT UNDER THE SKIN 3 TIMES DAILY WITH MEALS USING SLIDING SCALE
     Route: 058
  7. TAMSULOSIN [Concomitant]
     Active Substance: TAMSULOSIN
     Dosage: 2 CAPSULES DAILY (AFTER DINNER)
     Route: 048
  8. MULTIVITAMINS WITH MINERALS        /02319901/ [Concomitant]
     Dosage: UNK
  9. JAKAFI [Suspect]
     Active Substance: RUXOLITINIB
     Indication: ESSENTIAL THROMBOCYTHAEMIA
     Dosage: 25 MG, BID
     Route: 048
     Dates: start: 20150316

REACTIONS (6)
  - Increased tendency to bruise [Unknown]
  - Blood lactate dehydrogenase increased [Unknown]
  - Off label use [Unknown]
  - Asthenia [Unknown]
  - Tinnitus [Unknown]
  - Blood glucose increased [Unknown]

NARRATIVE: CASE EVENT DATE: 2015
